FAERS Safety Report 23937782 (Version 1)
Quarter: 2024Q2

REPORT INFORMATION
  Report Type: Report from Study
  Country: IN (occurrence: IN)
  Receive Date: 20240604
  Receipt Date: 20240604
  Transmission Date: 20240716
  Serious: Yes (Death)
  Sender: FDA-Public Use
  Company Number: IN-002147023-NVSC2024IN059248

PATIENT
  Age: 2 Year
  Sex: Male
  Weight: 7.71 kg

DRUGS (5)
  1. ZOLGENSMA [Suspect]
     Active Substance: ONASEMNOGENE ABEPARVOVEC-XIOI
     Indication: Spinal muscular atrophy
     Dosage: 44 ML (7.8X10^14)
     Route: 042
     Dates: start: 20240308, end: 20240308
  2. ZOLGENSMA [Suspect]
     Active Substance: ONASEMNOGENE ABEPARVOVEC-XIOI
     Dosage: 44 ML (7.8X10^14)
     Route: 042
     Dates: start: 20240308
  3. PREDNISOLONE [Concomitant]
     Active Substance: PREDNISOLONE
     Indication: Product used for unknown indication
     Dosage: 5 ML, QID
     Route: 048
  4. LACTULOSE [Concomitant]
     Active Substance: LACTULOSE
     Indication: Product used for unknown indication
     Dosage: 10 ML, TID
     Route: 048
  5. HALLENS [Concomitant]
     Indication: Product used for unknown indication
     Dosage: UNK, QD
     Route: 065

REACTIONS (8)
  - Sepsis [Fatal]
  - Vomiting [Fatal]
  - Pyrexia [Fatal]
  - Multiple organ dysfunction syndrome [Fatal]
  - Pyrexia [Recovered/Resolved]
  - Nausea [Recovered/Resolved]
  - Vomiting [Recovered/Resolved]
  - Constipation [Unknown]

NARRATIVE: CASE EVENT DATE: 20240311
